FAERS Safety Report 6527334-9 (Version None)
Quarter: 2010Q1

REPORT INFORMATION
  Report Type: 
  Country: None (occurrence: None)
  Receive Date: 20100104
  Receipt Date: 20100104
  Transmission Date: 20100710
  Serious: Yes (Other)
  Sender: FDA-Public Use
  Company Number: None

PATIENT

DRUGS (2)
  1. OXYCODONE AND ACETAMINOPHEN [Suspect]
     Indication: BACK PAIN
     Dosage: 1-2 BID PO
     Route: 048
     Dates: start: 20070616, end: 20070628
  2. OXYCODONE AND ACETAMINOPHEN [Suspect]
     Indication: OSTEOARTHRITIS
     Dosage: 1-2 BID PO
     Route: 048
     Dates: start: 20070616, end: 20070628

REACTIONS (1)
  - GASTROINTESTINAL PAIN [None]
